FAERS Safety Report 9241094 (Version 2)
Quarter: 2013Q3

REPORT INFORMATION
  Report Type: Spontaneous
  Country: CA (occurrence: CA)
  Receive Date: 20130419
  Receipt Date: 20130801
  Transmission Date: 20140515
  Serious: Yes (Other)
  Sender: FDA-Public Use
  Company Number: CA-AMGEN-CANSP2013008286

PATIENT
  Age: 57 Year
  Sex: Female

DRUGS (5)
  1. ENBREL [Suspect]
     Indication: RHEUMATOID ARTHRITIS
     Dosage: 50 MG, QWK
     Route: 065
     Dates: start: 20121108
  2. HUMIRA [Suspect]
     Indication: PRODUCT USED FOR UNKNOWN INDICATION
     Dosage: UNK
     Route: 065
  3. PREDNISONE [Concomitant]
     Dosage: UNK
  4. ARAVA [Concomitant]
     Dosage: UNK
  5. GOLD [Concomitant]
     Dosage: UNK

REACTIONS (13)
  - Hypersensitivity [Unknown]
  - Haemorrhage [Unknown]
  - Pruritus generalised [Unknown]
  - Swelling [Unknown]
  - Dysphagia [Unknown]
  - Blood pressure increased [Unknown]
  - Injection site bruising [Unknown]
  - Oedema peripheral [Unknown]
  - Rash [Unknown]
  - Contusion [Unknown]
  - Adverse drug reaction [Unknown]
  - Injection site hypersensitivity [Unknown]
  - Injection site erythema [Unknown]
